FAERS Safety Report 25115044 (Version 1)
Quarter: 2025Q1

REPORT INFORMATION
  Report Type: Spontaneous
  Country: US (occurrence: US)
  Receive Date: 20250324
  Receipt Date: 20250324
  Transmission Date: 20250409
  Serious: Yes (Hospitalization, Other)
  Sender: AMGEN
  Company Number: US-AMGEN-USASP2025050935

PATIENT
  Age: 36 Year
  Sex: Female

DRUGS (2)
  1. PREDNISONE [Suspect]
     Active Substance: PREDNISONE
     Indication: Renal transplant
     Dosage: 10 MILLIGRAM, QD
     Route: 065
  2. PREDNISONE [Suspect]
     Active Substance: PREDNISONE
     Indication: Pancreas transplant

REACTIONS (15)
  - Cellulitis [Unknown]
  - Transplant failure [Unknown]
  - Mycobacterium chelonae infection [Unknown]
  - Skin necrosis [Unknown]
  - Osteomyelitis [Unknown]
  - Candida infection [Unknown]
  - Hallucination [Recovered/Resolved]
  - Hangnail [Unknown]
  - Splinter [Unknown]
  - Skin fibrosis [Unknown]
  - Tenosynovitis [Unknown]
  - Vascular occlusion [Unknown]
  - Subcutaneous abscess [Unknown]
  - Fat necrosis [Unknown]
  - Eschar [Unknown]
